FAERS Safety Report 7620827-2 (Version None)
Quarter: 2011Q3

REPORT INFORMATION
  Report Type: 
  Country: None (occurrence: None)
  Receive Date: 20110719
  Receipt Date: 20110713
  Transmission Date: 20111222
  Serious: No
  Sender: FDA-Public Use
  Company Number: US-PFIZER INC-2011159178

PATIENT
  Sex: Female
  Weight: 72.562 kg

DRUGS (2)
  1. LABETALOL [Concomitant]
     Dosage: UNK
  2. ZYVOX [Suspect]
     Indication: STAPHYLOCOCCAL INFECTION
     Dosage: 600 MG, 2X/DAY
     Route: 048
     Dates: start: 20110701, end: 20110701

REACTIONS (1)
  - DIARRHOEA [None]
